FAERS Safety Report 25675251 (Version 1)
Quarter: 2025Q3

REPORT INFORMATION
  Report Type: Spontaneous
  Country: EU (occurrence: EU)
  Receive Date: 20250813
  Receipt Date: 20250813
  Transmission Date: 20251020
  Serious: Yes (Hospitalization, Other)
  Sender: Long Grove Pharmaceuticals
  Company Number: EU-Long Grove-000130

PATIENT
  Age: 37 Year
  Sex: Male
  Weight: 70 kg

DRUGS (5)
  1. METHADONE [Suspect]
     Active Substance: METHADONE HYDROCHLORIDE
     Indication: Drug use disorder
     Dosage: REDUCE THE METHADONE DOSE TO 100 MG/DAY
  2. ALPRAZOLAM [Concomitant]
     Active Substance: ALPRAZOLAM
  3. QUETIAPINE [Concomitant]
     Active Substance: QUETIAPINE
  4. ESCITALOPRAM [Concomitant]
     Active Substance: ESCITALOPRAM OXALATE
  5. GABAPENTIN [Concomitant]
     Active Substance: GABAPENTIN

REACTIONS (9)
  - Cardiogenic shock [Recovered/Resolved]
  - Left ventricular failure [Recovered/Resolved]
  - Low cardiac output syndrome [Recovered/Resolved]
  - Toxicity to various agents [Unknown]
  - Nervous system disorder [Recovered/Resolved]
  - Syncope [Recovered/Resolved]
  - Seizure [Recovered/Resolved]
  - Hepatic cytolysis [Recovered/Resolved]
  - Pulmonary congestion [Recovered/Resolved]
